FAERS Safety Report 7775013-2 (Version None)
Quarter: 2011Q3

REPORT INFORMATION
  Report Type: 
  Country: None (occurrence: None)
  Receive Date: 20110923
  Receipt Date: 20110920
  Transmission Date: 20111222
  Serious: Yes (Other)
  Sender: FDA-Public Use
  Company Number: US-PFIZER INC-2011223956

PATIENT
  Sex: Male

DRUGS (1)
  1. SERTRALINE HYDROCHLORIDE [Suspect]
     Dosage: 20 MG/ML, UNK
     Route: 048

REACTIONS (2)
  - DRUG INEFFECTIVE [None]
  - ABNORMAL BEHAVIOUR [None]
